FAERS Safety Report 9123306 (Version 1)
Quarter: 2013Q1

REPORT INFORMATION
  Report Type: Spontaneous
  Country: US (occurrence: US)
  Receive Date: 20130227
  Receipt Date: 20130227
  Transmission Date: 20140127
  Serious: Yes (Death)
  Sender: FDA-Public Use
  Company Number: US-ROCHE-1194112

PATIENT
  Age: 19 Year
  Sex: Male

DRUGS (6)
  1. DIAZEPAM [Suspect]
     Indication: PRODUCT USED FOR UNKNOWN INDICATION
     Dosage: INHALATION/NASAL + PARENTERAL
     Route: 051
  2. DIAZEPAM [Suspect]
     Dosage: OVERDOSE
     Route: 051
  3. HEROIN [Suspect]
     Indication: PRODUCT USED FOR UNKNOWN INDICATION
     Dosage: INHALATION/NASAL + PARENTERAL
     Route: 051
  4. HEROIN [Suspect]
     Dosage: OVERDOSE
     Route: 051
  5. LORAZEPAM [Suspect]
     Indication: PRODUCT USED FOR UNKNOWN INDICATION
     Dosage: INHALATION/NASAL + PARENTERAL
     Route: 051
  6. LORAZEPAM [Suspect]
     Dosage: OVERDOSE
     Route: 051

REACTIONS (3)
  - Toxicity to various agents [Fatal]
  - Cardiac arrest [Fatal]
  - Respiratory arrest [Fatal]
